FAERS Safety Report 13256265 (Version 1)
Quarter: 2017Q1

REPORT INFORMATION
  Report Type: Spontaneous
  Country: US (occurrence: US)
  Receive Date: 20170220
  Receipt Date: 20170220
  Transmission Date: 20170428
  Serious: Yes (Hospitalization)
  Sender: FDA-Public Use
  Company Number: None

PATIENT
  Age: 52 Year
  Sex: Male
  Weight: 93.5 kg

DRUGS (1)
  1. DALTEPARIN [Suspect]
     Active Substance: DALTEPARIN
     Indication: ANTIPHOSPHOLIPID SYNDROME
     Dosage: 7500 UNITS BID SQ
     Route: 058
     Dates: start: 20161120, end: 20161122

REACTIONS (2)
  - Haematoma [None]
  - Peripheral swelling [None]

NARRATIVE: CASE EVENT DATE: 20161122
